FAERS Safety Report 19412281 (Version 2)
Quarter: 2021Q2

REPORT INFORMATION
  Report Type: Spontaneous
  Country: IL (occurrence: IL)
  Receive Date: 20210614
  Receipt Date: 20210617
  Transmission Date: 20210717
  Serious: Yes (Other)
  Sender: FDA-Public Use
  Company Number: NVSC2021IL126002

PATIENT
  Age: 23 Year
  Sex: Male
  Weight: 70 kg

DRUGS (3)
  1. CONCERTA [Concomitant]
     Active Substance: METHYLPHENIDATE HYDROCHLORIDE
     Indication: PRODUCT USED FOR UNKNOWN INDICATION
     Dosage: UNK
     Route: 065
  2. RITALIN LA [Suspect]
     Active Substance: METHYLPHENIDATE HYDROCHLORIDE
     Indication: ATTENTION DEFICIT HYPERACTIVITY DISORDER
     Dosage: PILL OR TWO FROM THE BOX
     Route: 065
  3. RITALIN LA [Suspect]
     Active Substance: METHYLPHENIDATE HYDROCHLORIDE
     Dosage: 1 DF, QD (FOR A PERIOD OF 20 DAYS)
     Route: 065

REACTIONS (9)
  - Compulsions [Recovered/Resolved]
  - Personality disorder [Recovered/Resolved]
  - Headache [Recovered/Resolved]
  - Anxiety [Recovered/Resolved]
  - Depression [Recovered/Resolved]
  - Incorrect product administration duration [Recovered/Resolved]
  - Psychotic disorder [Recovered/Resolved]
  - Libido increased [Recovered/Resolved]
  - Product dose omission issue [Recovered/Resolved]
